FAERS Safety Report 21593623 (Version 3)
Quarter: 2022Q4

REPORT INFORMATION
  Report Type: Spontaneous
  Country: JP (occurrence: JP)
  Receive Date: 20221115
  Receipt Date: 20221125
  Transmission Date: 20230113
  Serious: Yes (Death, Hospitalization)
  Sender: FDA-Public Use
  Company Number: JP-JNJFOC-20221123413

PATIENT
  Age: 73 Year
  Sex: Female
  Weight: 40 kg

DRUGS (26)
  1. OPSUMIT [Suspect]
     Active Substance: MACITENTAN
     Indication: Pulmonary hypertension
     Dosage: 30 MINUTES AFTER BREAK FAST
     Route: 048
     Dates: start: 20220624, end: 20221013
  2. CANDESARTAN [Concomitant]
     Active Substance: CANDESARTAN
     Dosage: 30 MINUTES AFTER BREAKFAST
     Route: 048
  3. MINODRONIC ACID [Concomitant]
     Active Substance: MINODRONIC ACID
     Dosage: UPON AWAKENING
     Route: 048
  4. ALFACALCIDOL [Concomitant]
     Active Substance: ALFACALCIDOL
     Route: 048
  5. ALFACALCIDOL [Concomitant]
     Active Substance: ALFACALCIDOL
     Dosage: 30 MINUTES AFTER BREAKFAST
     Route: 048
  6. ASPIRIN [Concomitant]
     Active Substance: ASPIRIN
     Route: 048
  7. AMLODIPINE [Concomitant]
     Active Substance: AMLODIPINE BESYLATE
     Route: 048
  8. IMURAN [Concomitant]
     Active Substance: AZATHIOPRINE
     Indication: Systemic scleroderma
     Dosage: 30 MINUTES AFTER BREAKFAST
     Route: 048
  9. SALIGREN [Concomitant]
     Dosage: 30 MINUTES AFTER MEALS
     Route: 048
  10. BERAPROST SODIUM [Concomitant]
     Active Substance: BERAPROST SODIUM
     Route: 048
  11. BISOPROLOL FUMARATE [Concomitant]
     Active Substance: BISOPROLOL FUMARATE
     Dosage: 30 MINUTES AFTER BREAKFAST
     Route: 048
  12. BROMHEXINE HYDROCHLORIDE [Concomitant]
     Active Substance: BROMHEXINE HYDROCHLORIDE
     Dosage: 30 MINUTES AFTER MEALS
     Route: 048
  13. ZINC [Concomitant]
     Active Substance: ZINC
     Route: 048
  14. ZINC [Concomitant]
     Active Substance: ZINC
     Dosage: 30 MINUTES AFTER BREAKFAST AND DINNER
     Route: 048
  15. FUROSEMIDE [Concomitant]
     Active Substance: FUROSEMIDE
     Route: 048
  16. FUROSEMIDE [Concomitant]
     Active Substance: FUROSEMIDE
     Dosage: 30 MINUTES AFTER BREAKFAST
     Route: 048
  17. PREDONINE [Concomitant]
     Active Substance: PREDNISOLONE
     Indication: Systemic scleroderma
     Route: 048
  18. LANSOPRAZOLE [Concomitant]
     Active Substance: LANSOPRAZOLE
     Dosage: 30 MINUTES AFTER BREAKFAST
     Route: 048
  19. PREDNISOLONE [Concomitant]
     Active Substance: PREDNISOLONE
     Route: 048
  20. PREDNISOLONE [Concomitant]
     Active Substance: PREDNISOLONE
     Dosage: 30 MINUTES AFTER BREAKFAST
     Route: 048
  21. ASPIRIN [Concomitant]
     Active Substance: ASPIRIN
     Dosage: 30 MINUTES AFTER BREAKFAST
     Route: 048
  22. BERAPROST SODIUM [Concomitant]
     Active Substance: BERAPROST SODIUM
     Dosage: 30 MINUTES AFTER BREAKFAST AND DINNER
     Route: 048
  23. POVIDONE-IODINE [Concomitant]
     Active Substance: POVIDONE-IODINE
     Route: 065
  24. LOXOPROFEN [Concomitant]
     Active Substance: LOXOPROFEN
     Dosage: AT THE TIME OF FEVER
     Route: 048
     Dates: start: 20220806
  25. ETIZOLAM [Concomitant]
     Active Substance: ETIZOLAM
     Dosage: P.R.N( AT THE TIME OF CHEST PAIN
     Route: 048
  26. AMLODIPINE BESYLATE\CANDESARTAN CILEXETIL [Concomitant]
     Active Substance: AMLODIPINE BESYLATE\CANDESARTAN CILEXETIL
     Dosage: 30 MINUTES AFTER BREAKFAST
     Route: 048

REACTIONS (1)
  - Pneumocystis jirovecii pneumonia [Fatal]

NARRATIVE: CASE EVENT DATE: 20220918
